FAERS Safety Report 8939957 (Version 2)
Quarter: 2012Q4

REPORT INFORMATION
  Report Type: 
  Country: US (occurrence: US)
  Receive Date: 20121203
  Receipt Date: 20121210
  Transmission Date: 20130627
  Serious: No
  Sender: FDA-Public Use
  Company Number: US-PFIZER INC-2012300608

PATIENT
  Age: 60 Year
  Sex: Female
  Weight: 63.49 kg

DRUGS (12)
  1. LYRICA [Suspect]
     Indication: DIABETIC NEPHROPATHY
     Dosage: 50 mg, 2x/day
     Dates: end: 201211
  2. LYRICA [Suspect]
     Indication: PAIN IN HAND
  3. LYRICA [Suspect]
     Indication: COLD HANDS
  4. LYRICA [Suspect]
     Indication: NUMBNESS IN FEET
  5. LYRICA [Suspect]
     Indication: PAIN IN FOOT
  6. METFORMIN [Concomitant]
     Indication: DIABETES
     Dosage: UNK
  7. INSULIN [Concomitant]
     Indication: DIABETES
     Dosage: UNK
  8. AMARYL [Concomitant]
     Indication: DIABETES
     Dosage: UNK
  9. LOSARTAN POTASSIUM [Concomitant]
     Indication: BLOOD PRESSURE HIGH
     Dosage: UNK
  10. HYDROCHLOROTHIAZIDE [Concomitant]
     Indication: BLOOD PRESSURE HIGH
     Dosage: UNK
  11. DILTIAZEM [Concomitant]
     Indication: BLOOD PRESSURE HIGH
     Dosage: UNK
  12. ACIPHEX [Concomitant]
     Indication: HEARTBURN
     Dosage: UNK

REACTIONS (2)
  - Pain in extremity [Not Recovered/Not Resolved]
  - Hypoaesthesia [Not Recovered/Not Resolved]
